FAERS Safety Report 13621542 (Version 1)
Quarter: 2017Q2

REPORT INFORMATION
  Report Type: Report from Study
  Country: None (occurrence: IT)
  Receive Date: 20170607
  Receipt Date: 20170607
  Transmission Date: 20170830
  Serious: Yes (Death)
  Sender: FDA-Public Use
  Company Number: IT-ABBVIE-17K-083-1999149-00

PATIENT
  Sex: Female
  Weight: 38 kg

DRUGS (1)
  1. DUODOPA [Suspect]
     Active Substance: CARBIDOPA\LEVODOPA
     Indication: PARKINSON^S DISEASE
     Dosage: MD 5.5+3?CR 3.4?ED 4.1
     Route: 050
     Dates: start: 20160125, end: 20170512

REACTIONS (4)
  - Weight decreased [Fatal]
  - Cachexia [Fatal]
  - Myocardial infarction [Fatal]
  - General physical health deterioration [Fatal]

NARRATIVE: CASE EVENT DATE: 2017
